FAERS Safety Report 11720691 (Version 1)
Quarter: 2015Q4

REPORT INFORMATION
  Report Type: Spontaneous
  Country: GB (occurrence: GB)
  Receive Date: 20151110
  Receipt Date: 20151110
  Transmission Date: 20160304
  Serious: Yes (Other)
  Sender: FDA-Public Use
  Company Number: GB-BAXTER-2015BAX060052

PATIENT

DRUGS (1)
  1. METRONIDAZOLE 500 MG / 100 ML INTRAVENOUS INFUSION [Suspect]
     Active Substance: METRONIDAZOLE
     Indication: GASTROINTESTINAL INFECTION
     Route: 065

REACTIONS (3)
  - Acute hepatic failure [Recovered/Resolved]
  - Abasia [Recovered/Resolved]
  - Nervous system disorder [Recovered/Resolved]
